FAERS Safety Report 10486903 (Version 1)
Quarter: 2014Q3

REPORT INFORMATION
  Report Type: Spontaneous
  Country: US (occurrence: None)
  Receive Date: 20140930
  Receipt Date: 20140930
  Transmission Date: 20150326
  Serious: Yes (Hospitalization)
  Sender: FDA-Public Use
  Company Number: None

PATIENT
  Age: 61 Year
  Sex: Male
  Weight: 71.8 kg

DRUGS (1)
  1. CYTARABINE. [Suspect]
     Active Substance: CYTARABINE
     Dates: end: 20140823

REACTIONS (5)
  - Pyrexia [None]
  - Unevaluable event [None]
  - Dizziness [None]
  - Dyspnoea [None]
  - Neutropenia [None]

NARRATIVE: CASE EVENT DATE: 20140902
